FAERS Safety Report 24880672 (Version 1)
Quarter: 2025Q1

REPORT INFORMATION
  Report Type: Report from Study
  Country: US (occurrence: US)
  Receive Date: 20250123
  Receipt Date: 20250123
  Transmission Date: 20250408
  Serious: Yes (Other)
  Sender: ABBVIE
  Company Number: US-ABBVIE-6092593

PATIENT
  Age: 67 Year
  Sex: Male

DRUGS (1)
  1. CREON [Suspect]
     Active Substance: PANCRELIPASE AMYLASE\PANCRELIPASE LIPASE\PANCRELIPASE PROTEASE
     Indication: Product used for unknown indication
     Route: 048
     Dates: start: 20171101

REACTIONS (6)
  - Injury associated with device [Recovered/Resolved]
  - Central venous catheterisation [Unknown]
  - Impaired healing [Unknown]
  - Herpes zoster [Unknown]
  - Nephrolithiasis [Unknown]
  - Incisional hernia [Unknown]

NARRATIVE: CASE EVENT DATE: 20171101
